FAERS Safety Report 10375487 (Version 4)
Quarter: 2019Q4

REPORT INFORMATION
  Report Type: Spontaneous
  Country: US (occurrence: US)
  Receive Date: 20140811
  Receipt Date: 20191118
  Transmission Date: 20200122
  Serious: Yes (Other)
  Sender: FDA-Public Use
  Company Number: US-PFIZER INC-2014220399

PATIENT
  Age: 53 Year
  Sex: Female
  Weight: 78.5 kg

DRUGS (22)
  1. XELJANZ [Suspect]
     Active Substance: TOFACITINIB CITRATE
     Dosage: UNK
     Dates: start: 20140121, end: 20191011
  2. BIOTIN [Concomitant]
     Active Substance: BIOTIN
     Dosage: UNK
  3. FERROUS SULFATE. [Concomitant]
     Active Substance: FERROUS SULFATE
     Indication: BLOOD IRON DECREASED
     Dosage: UNK, ONCE A DAY
  4. FERROUS SULFATE. [Concomitant]
     Active Substance: FERROUS SULFATE
     Dosage: UNK, 2X/DAY
  5. TERAZOSIN [Concomitant]
     Active Substance: TERAZOSIN HYDROCHLORIDE
     Dosage: UNK
  6. XELJANZ [Suspect]
     Active Substance: TOFACITINIB CITRATE
     Indication: RHEUMATOID ARTHRITIS
     Dosage: 5 MG, ONCE A DAY
     Route: 048
     Dates: start: 20131101, end: 20140601
  7. XELJANZ [Suspect]
     Active Substance: TOFACITINIB CITRATE
     Dosage: 5 MG, DAILY
     Dates: start: 2014
  8. VITAMIN C [Concomitant]
     Active Substance: ASCORBIC ACID
     Dosage: UNK
  9. SUPER VITAMIN B COMPLEX [Concomitant]
     Dosage: UNK
  10. CALCIUM [Concomitant]
     Active Substance: CALCIUM
     Dosage: UNK
  11. INSYNC [Concomitant]
     Dosage: UNK
  12. FUROSEMIDE. [Concomitant]
     Active Substance: FUROSEMIDE
     Dosage: UNK
  13. FISH OIL [Concomitant]
     Active Substance: FISH OIL
     Dosage: UNK
  14. VITAMIN D3 [Concomitant]
     Active Substance: CHOLECALCIFEROL
     Dosage: UNK
  15. GREEN TEA [CAMELLIA SINENSIS] [Concomitant]
     Dosage: UNK
  16. SALSALATE. [Concomitant]
     Active Substance: SALSALATE
     Dosage: UNK
  17. METRAZOL [Concomitant]
     Active Substance: PENTETRAZOL
     Dosage: UNK
  18. CRESTOR [Concomitant]
     Active Substance: ROSUVASTATIN CALCIUM
     Dosage: UNK
  19. MAGNESIUM [Concomitant]
     Active Substance: MAGNESIUM
     Dosage: UNK
  20. COQ 10 [Concomitant]
     Active Substance: UBIDECARENONE
     Dosage: UNK
  21. ERY-TAB [Concomitant]
     Active Substance: ERYTHROMYCIN
     Dosage: UNK
  22. MSM [Concomitant]
     Active Substance: DIMETHYL SULFONE
     Dosage: UNK

REACTIONS (7)
  - Blood cholesterol increased [Unknown]
  - Squamous cell carcinoma of skin [Unknown]
  - Scab [Unknown]
  - Weight increased [Unknown]
  - Blood iron decreased [Unknown]
  - Drug ineffective [Unknown]
  - Oedema peripheral [Unknown]

NARRATIVE: CASE EVENT DATE: 2014
